FAERS Safety Report 6431571-1 (Version None)
Quarter: 2009Q4

REPORT INFORMATION
  Report Type: 
  Country: None (occurrence: None)
  Receive Date: 20091103
  Receipt Date: 20091022
  Transmission Date: 20100525
  Serious: Yes (Hospitalization)
  Sender: FDA-Public Use
  Company Number: 2008SP006820

PATIENT
  Age: 56 Year
  Sex: Female
  Weight: 71 kg

DRUGS (4)
  1. PEG-INTRON [Suspect]
     Indication: HEPATITIS C
     Dosage: 100 MCG;QW;SC
     Route: 058
     Dates: start: 20050422, end: 20060324
  2. REBETOL [Suspect]
     Indication: HEPATITIS C
     Dosage: 800 MCG;QD;PO
     Route: 048
     Dates: start: 20050422, end: 20060324
  3. ADVAFERON [Suspect]
     Indication: HEPATITIS C
     Dosage: 1800 IU;TIW;SC
     Route: 058
     Dates: start: 20060101, end: 20060901
  4. GASTER D [Concomitant]

REACTIONS (4)
  - ENDOCRINE OPHTHALMOPATHY [None]
  - HYPOTHYROIDISM [None]
  - RETINAL EXUDATES [None]
  - RETINAL HAEMORRHAGE [None]
